FAERS Safety Report 4827446-1 (Version None)
Quarter: 2005Q4

REPORT INFORMATION
  Report Type: 
  Country: None (occurrence: None)
  Receive Date: 20051110
  Receipt Date: 20051028
  Transmission Date: 20060501
  Serious: Yes (Other)
  Sender: FDA-Public Use
  Company Number: 2005-10-1606

PATIENT
  Sex: Female

DRUGS (1)
  1. PROVENTIL [Suspect]
     Indication: ASTHMA
     Dosage: PRN ORAL AER INH
     Route: 055

REACTIONS (8)
  - CONVULSION [None]
  - DRUG INEFFECTIVE [None]
  - DRUG INTOLERANCE [None]
  - HEADACHE [None]
  - MALAISE [None]
  - MOUTH INJURY [None]
  - PHARMACEUTICAL PRODUCT COMPLAINT [None]
  - POOR QUALITY DRUG ADMINISTERED [None]
